FAERS Safety Report 5129642-5 (Version None)
Quarter: 2006Q4

REPORT INFORMATION
  Report Type: 
  Country: None (occurrence: None)
  Receive Date: 20061018
  Receipt Date: 20060915
  Transmission Date: 20070319
  Serious: Yes (Hospitalization)
  Sender: FDA-Public Use
  Company Number: ES-ROCHE-464071

PATIENT
  Age: 38 Year
  Sex: Male
  Weight: 71 kg

DRUGS (5)
  1. PEG-INTERFERON A-2A (RO 25-8310) [Suspect]
     Dosage: FREQUENCY= WEEKLY. DOSAGE FORM REPORTED AS SYRINGES.
     Route: 058
     Dates: start: 20030505, end: 20030710
  2. RIBAVIRIN [Suspect]
     Route: 048
     Dates: start: 20030505, end: 20030710
  3. D4T [Concomitant]
     Indication: HIV INFECTION
  4. LAMIVUDINE [Concomitant]
     Indication: HIV INFECTION
  5. EFAVIRENZ [Concomitant]
     Indication: HIV INFECTION

REACTIONS (1)
  - EPILEPSY [None]
